FAERS Safety Report 9133663 (Version 1)
Quarter: 2013Q1

REPORT INFORMATION
  Report Type: Spontaneous
  Country: BR (occurrence: BR)
  Receive Date: 20130302
  Receipt Date: 20130302
  Transmission Date: 20140127
  Serious: Yes (Hospitalization, Other)
  Sender: FDA-Public Use
  Company Number: BR-ACCORD-016629

PATIENT
  Age: 49 Year
  Sex: Female
  Weight: 68.9 kg

DRUGS (6)
  1. PACLITAXEL [Suspect]
     Indication: BREAST CANCER
     Dosage: 80MG/M2
     Route: 042
     Dates: start: 20121122
  2. DIPHENHYDRAMINE [Concomitant]
     Route: 042
     Dates: start: 20121213, end: 20121213
  3. GRANULOKINE [Concomitant]
     Dosage: 50UI
     Dates: start: 20121213, end: 20121215
  4. GRANISETRON [Concomitant]
     Route: 042
     Dates: start: 20121213, end: 20121213
  5. DEXAMETHASONE [Concomitant]
     Route: 042
     Dates: start: 20121213, end: 20121213
  6. CARBOPLATIN [Concomitant]
     Indication: BREAST CANCER
     Dosage: AUC 2
     Dates: start: 20121122

REACTIONS (8)
  - Dyspnoea [Recovered/Resolved]
  - Nausea [Recovered/Resolved]
  - Back pain [Recovered/Resolved]
  - Suffocation feeling [Recovered/Resolved]
  - Tremor [Recovered/Resolved]
  - Pallor [Recovered/Resolved]
  - Tachycardia [Recovered/Resolved]
  - Pyrexia [Recovered/Resolved]
